FAERS Safety Report 12972170 (Version 1)
Quarter: 2016Q4

REPORT INFORMATION
  Report Type: Other
  Country: CA (occurrence: CA)
  Receive Date: 20161124
  Receipt Date: 20161124
  Transmission Date: 20170207
  Serious: Yes (Other)
  Sender: FDA-Public Use
  Company Number: CA-APOTEX-2016AP014660

PATIENT
  Sex: Male

DRUGS (1)
  1. APO-SERTRALINE [Suspect]
     Active Substance: SERTRALINE HYDROCHLORIDE
     Indication: PRODUCT USED FOR UNKNOWN INDICATION
     Dosage: 25 MG, UNK
     Route: 065

REACTIONS (8)
  - Hyperhidrosis [Unknown]
  - Depression [Unknown]
  - Agitation [Unknown]
  - Suicidal ideation [Unknown]
  - Blood pressure increased [Unknown]
  - Heart rate increased [Unknown]
  - Tremor [Unknown]
  - Insomnia [Unknown]
